FAERS Safety Report 8468289 (Version 3)
Quarter: 2012Q4

REPORT INFORMATION
  Report Type: 
  Country: US (occurrence: US)
  Receive Date: 20120320
  Receipt Date: 20121019
  Transmission Date: 20130627
  Serious: Yes (Hospitalization)
  Sender: FDA-Public Use
  Company Number: US-BAYER-2012-024372

PATIENT
  Age: 29 Year
  Sex: Female
  Weight: 87.08 kg

DRUGS (2)
  1. YASMIN [Suspect]
     Dosage: UNK
     Dates: start: 200812, end: 201012
  2. OCELLA [Suspect]
     Dosage: UNK
     Dates: start: 200812, end: 201012

REACTIONS (7)
  - Cholecystectomy [Unknown]
  - Pain [Unknown]
  - Pain [None]
  - Injury [None]
  - General physical health deterioration [None]
  - Anxiety [None]
  - Anhedonia [None]
